FAERS Safety Report 25243114 (Version 1)
Quarter: 2025Q2

REPORT INFORMATION
  Report Type: Spontaneous
  Country: TW (occurrence: TW)
  Receive Date: 20250428
  Receipt Date: 20250428
  Transmission Date: 20250716
  Serious: Yes (Hospitalization)
  Sender: DAIICHI
  Company Number: TW-DSJP-DS-2025-137849-TW

PATIENT
  Age: 86 Year
  Sex: Female
  Weight: 60.3 kg

DRUGS (11)
  1. EDOXABAN [Suspect]
     Active Substance: EDOXABAN
     Indication: Atrial fibrillation
     Dosage: 1 DOSAGE FORM, QD
     Route: 048
  2. LEVOFLOXACIN [Suspect]
     Active Substance: LEVOFLOXACIN
     Indication: Evidence based treatment
     Route: 065
     Dates: start: 20240705, end: 2024
  3. LEVOFLOXACIN [Suspect]
     Active Substance: LEVOFLOXACIN
     Route: 065
     Dates: start: 20240801
  4. DOXEPIN [Suspect]
     Active Substance: DOXEPIN
     Indication: Tremor
     Route: 065
     Dates: start: 2024, end: 20240801
  5. DOXEPIN [Suspect]
     Active Substance: DOXEPIN
     Indication: Dizziness
     Route: 065
     Dates: start: 20240802
  6. DOXEPIN [Suspect]
     Active Substance: DOXEPIN
     Indication: Neck pain
  7. DOXEPIN [Suspect]
     Active Substance: DOXEPIN
     Indication: Oliguria
  8. DOXEPIN [Suspect]
     Active Substance: DOXEPIN
     Indication: Decreased appetite
  9. DOXEPIN [Suspect]
     Active Substance: DOXEPIN
     Indication: Chills
  10. DOXEPIN [Suspect]
     Active Substance: DOXEPIN
     Indication: Wheezing
  11. DOXEPIN [Suspect]
     Active Substance: DOXEPIN
     Indication: Dyspnoea

REACTIONS (16)
  - Rash vesicular [Recovered/Resolved]
  - Tremor [Unknown]
  - Neck pain [Unknown]
  - Oliguria [Unknown]
  - Decreased appetite [Unknown]
  - Chills [Unknown]
  - Dizziness [Unknown]
  - Oropharyngeal pain [Unknown]
  - Rhinorrhoea [Unknown]
  - White blood cell count increased [Unknown]
  - C-reactive protein increased [Unknown]
  - Wheezing [Unknown]
  - Dyspnoea [Recovering/Resolving]
  - Electrocardiogram QT prolonged [Unknown]
  - Pyrexia [Unknown]
  - Pruritus [Recovering/Resolving]

NARRATIVE: CASE EVENT DATE: 20240703
